FAERS Safety Report 19211456 (Version 1)
Quarter: 2021Q2

REPORT INFORMATION
  Report Type: Spontaneous
  Country: US (occurrence: US)
  Receive Date: 20210503
  Receipt Date: 20210503
  Transmission Date: 20210717
  Serious: No
  Sender: FDA-Public Use
  Company Number: None

PATIENT
  Age: 66 Year
  Sex: Male

DRUGS (2)
  1. FENTANYL (FENTANYL CITRATE 50MCG/ML INJ) [Suspect]
     Active Substance: FENTANYL CITRATE
     Indication: SEDATION
     Dosage: ?          OTHER ROUTE:IV?
     Dates: start: 20210412, end: 20210412
  2. MIDAZOLAM (MIDAZOLAM HCL 1MG/ML INJ) [Suspect]
     Active Substance: MIDAZOLAM HYDROCHLORIDE
     Indication: SEDATION
     Dosage: ?          OTHER ROUTE:IV?
     Dates: start: 20210412, end: 20210412

REACTIONS (8)
  - Nausea [None]
  - Mental status changes [None]
  - Respiratory alkalosis [None]
  - Vomiting [None]
  - Hypertension [None]
  - Confusional state [None]
  - Hyperventilation [None]
  - Agitation [None]

NARRATIVE: CASE EVENT DATE: 20210412
